FAERS Safety Report 5918402-0 (Version None)
Quarter: 2008Q4

REPORT INFORMATION
  Report Type: 
  Country: None (occurrence: None)
  Receive Date: 20081010
  Receipt Date: 20081001
  Transmission Date: 20090506
  Serious: Yes (Other)
  Sender: FDA-Public Use
  Company Number: 2008AP000308

PATIENT
  Age: 44 Year
  Sex: Female

DRUGS (15)
  1. PAROXETINE HCL [Suspect]
     Indication: DEPRESSION
     Dosage: 20 MG; PO;QD; 30 MG;PO;QD; 40 MG;PO;QD
     Route: 048
     Dates: start: 20020325
  2. PAROXETINE HCL [Suspect]
     Indication: DEPRESSION
     Dosage: 20 MG; PO;QD; 30 MG;PO;QD; 40 MG;PO;QD
     Route: 048
     Dates: start: 20020901
  3. PAROXETINE HCL [Suspect]
     Indication: DEPRESSION
     Dosage: 20 MG; PO;QD; 30 MG;PO;QD; 40 MG;PO;QD
     Route: 048
     Dates: start: 20070104
  4. PAROXETINE HCL [Suspect]
     Indication: DEPRESSION
     Dosage: 20 MG; PO;QD; 30 MG;PO;QD; 40 MG;PO;QD
     Route: 048
     Dates: start: 20070212
  5. PAROXETINE HCL [Suspect]
     Indication: DEPRESSION
     Dosage: 20 MG; PO;QD; 30 MG;PO;QD; 40 MG;PO;QD
     Route: 048
     Dates: start: 20070301
  6. PAROXETINE HCL [Suspect]
     Indication: DEPRESSION
     Dosage: 20 MG; PO;QD; 30 MG;PO;QD; 40 MG;PO;QD
     Route: 048
     Dates: start: 20070322
  7. PAROXETINE HCL [Suspect]
     Indication: DEPRESSION
     Dosage: 20 MG; PO;QD; 30 MG;PO;QD; 40 MG;PO;QD
     Route: 048
     Dates: start: 20070511
  8. PAROXETINE HCL [Suspect]
     Indication: DEPRESSION
     Dosage: 20 MG; PO;QD; 30 MG;PO;QD; 40 MG;PO;QD
     Route: 048
     Dates: start: 20080725
  9. AMITRIPTYLINE HYDROCHLORIDE [Concomitant]
  10. CITALOPRAM HYDROBROMIDE [Concomitant]
  11. RISPERDAL [Concomitant]
  12. ZOPICLONE (ZOPICLONE) [Concomitant]
  13. CODEINE PHOSPHATE (CODEINE PHOSPHATE) [Concomitant]
  14. ACETAMINOPHEN [Concomitant]
  15. RISPERDAL [Concomitant]

REACTIONS (44)
  - AFFECTIVE DISORDER [None]
  - AGITATION [None]
  - AGORAPHOBIA [None]
  - ANGER [None]
  - ANOREXIA [None]
  - ANXIETY [None]
  - CONFUSIONAL STATE [None]
  - DEATH OF RELATIVE [None]
  - DEPRESSED MOOD [None]
  - DEPRESSION [None]
  - DISTURBANCE IN ATTENTION [None]
  - DIZZINESS [None]
  - DRUG WITHDRAWAL SYNDROME [None]
  - ECONOMIC PROBLEM [None]
  - FAMILY STRESS [None]
  - FATIGUE [None]
  - GASTROINTESTINAL DISORDER [None]
  - HEADACHE [None]
  - HYPOAESTHESIA [None]
  - INFERIORITY COMPLEX [None]
  - INTENTIONAL SELF-INJURY [None]
  - INTESTINAL FUNCTIONAL DISORDER [None]
  - JUDGEMENT IMPAIRED [None]
  - LETHARGY [None]
  - MALAISE [None]
  - MEMORY IMPAIRMENT [None]
  - MICTURITION DISORDER [None]
  - NIGHTMARE [None]
  - PALPITATIONS [None]
  - PANIC ATTACK [None]
  - PARAESTHESIA [None]
  - POOR QUALITY SLEEP [None]
  - PSYCHOMOTOR HYPERACTIVITY [None]
  - SCRATCH [None]
  - SELF-INJURIOUS IDEATION [None]
  - SENSORY DISTURBANCE [None]
  - SEXUAL DYSFUNCTION [None]
  - SLEEP DISORDER [None]
  - SUICIDAL IDEATION [None]
  - TEARFULNESS [None]
  - TENSION [None]
  - TREMOR [None]
  - UNEMPLOYMENT [None]
  - VERTIGO [None]
